FAERS Safety Report 8909680 (Version 1)
Quarter: 2012Q4

REPORT INFORMATION
  Report Type: Spontaneous
  Country: US (occurrence: None)
  Receive Date: 20121109
  Receipt Date: 20121109
  Transmission Date: 20130627
  Serious: Yes (Other)
  Sender: FDA-Public Use
  Company Number: ADR-2012-02044

PATIENT
  Sex: Female

DRUGS (1)
  1. BACLOFEN INTRATHECAL [Suspect]
     Indication: MULTIPLE SCLEROSIS

REACTIONS (7)
  - Herpes zoster oticus [None]
  - Tremor [None]
  - VIIth nerve paralysis [None]
  - Asthenia [None]
  - Pallor [None]
  - Hypotension [None]
  - Thyroid disorder [None]
